FAERS Safety Report 4764151-4 (Version None)
Quarter: 2005Q3

REPORT INFORMATION
  Report Type: 
  Country: None (occurrence: None)
  Receive Date: 20050906
  Receipt Date: 20050620
  Transmission Date: 20060218
  Serious: No
  Sender: FDA-Public Use
  Company Number: 2005-BP-10384BP

PATIENT
  Age: 77 Year
  Sex: Female

DRUGS (26)
  1. SPIRIVA [Suspect]
     Indication: ASTHMA
     Dosage: 18 MCG (18 MCG, QD), IH
     Route: 055
     Dates: start: 20050616, end: 20050619
  2. SPIRIVA [Suspect]
     Indication: CHRONIC OBSTRUCTIVE PULMONARY DISEASE
     Dosage: 18 MCG (18 MCG, QD), IH
     Route: 055
     Dates: start: 20050616, end: 20050619
  3. ADVAIR DISKUS 100/50 [Concomitant]
  4. XALATAN [Concomitant]
  5. ALPHAGAN [Concomitant]
  6. LOTOMAX [Concomitant]
  7. VIGAMAX [Concomitant]
  8. HYZAAR [Concomitant]
  9. ACCOLATE [Concomitant]
  10. PRILOSEC [Concomitant]
  11. ALUMINUM HYDROXIDE AND MAGNESIUM TRISILICATE [Concomitant]
  12. PEPCID COMPLETE (FAMOTIDINE) [Concomitant]
  13. SIMVASTATIN [Concomitant]
  14. NITROQUICK [Concomitant]
  15. VITAMINS:  ONE A DAY [Concomitant]
  16. LUTEIN (XANTOFYL) [Concomitant]
  17. ABC MULTIVITAMINS [Concomitant]
  18. LECHTEIN [Concomitant]
  19. CALCIUM - VITAMIN D [Concomitant]
  20. VIT C (NATURAL) [Concomitant]
  21. OMEGA FISH OIL (OMEGA AUG/) [Concomitant]
  22. ASPIRIN COATED (ACETYLSALICYLIC ACID) [Concomitant]
  23. DARVOCET [Concomitant]
  24. ECOTRIN (ACETYLSALICYLIC ACID) [Concomitant]
  25. LIDODERM (LIDOCAINE) [Concomitant]
  26. TRUSOPT [Concomitant]

REACTIONS (4)
  - BRONCHOSPASM [None]
  - DYSPNOEA [None]
  - FEELING ABNORMAL [None]
  - RESPIRATORY RATE INCREASED [None]
